FAERS Safety Report 6633112-2 (Version None)
Quarter: 2010Q1

REPORT INFORMATION
  Report Type: 
  Country: None (occurrence: None)
  Receive Date: 20100312
  Receipt Date: 20100301
  Transmission Date: 20100710
  Serious: Yes (Other)
  Sender: FDA-Public Use
  Company Number: PHEH2008US03141

PATIENT
  Sex: Female

DRUGS (4)
  1. AREDIA [Suspect]
  2. ZOMETA [Suspect]
  3. LASIX [Concomitant]
  4. CORTISONE [Concomitant]

REACTIONS (12)
  - ANXIETY [None]
  - BONE DISORDER [None]
  - BREAST CANCER [None]
  - DEBRIDEMENT [None]
  - EMOTIONAL DISTRESS [None]
  - INFECTION [None]
  - INJURY [None]
  - OSTEONECROSIS [None]
  - PAIN [None]
  - PHYSICAL DISABILITY [None]
  - SCAR [None]
  - TOOTH EXTRACTION [None]
